FAERS Safety Report 7237595-9 (Version None)
Quarter: 2011Q1

REPORT INFORMATION
  Report Type: 
  Country: None (occurrence: None)
  Receive Date: 20110113
  Receipt Date: 20110103
  Transmission Date: 20110831
  Serious: Yes (Hospitalization)
  Sender: FDA-Public Use
  Company Number: 1000018099

PATIENT
  Sex: Male

DRUGS (2)
  1. MEMANTINE [Suspect]
     Dosage: 10 MG (10 MG, 1 IN 1D),ORAL
     Route: 048
     Dates: start: 20090101
  2. ARICEPT [Suspect]
     Dosage: 10 MG (10 MG, 1 IN 1 D),ORAL
     Route: 048
     Dates: start: 20080101, end: 20100318

REACTIONS (4)
  - ATRIOVENTRICULAR BLOCK COMPLETE [None]
  - SINUS BRADYCARDIA [None]
  - GENERAL PHYSICAL HEALTH DETERIORATION [None]
  - DECREASED APPETITE [None]
